FAERS Safety Report 11269631 (Version 2)
Quarter: 2015Q3

REPORT INFORMATION
  Report Type: Spontaneous
  Country: US (occurrence: US)
  Receive Date: 20150714
  Receipt Date: 20150714
  Transmission Date: 20151125
  Serious: Yes (Other)
  Sender: FDA-Public Use
  Company Number: US-PFIZER INC-2015229212

PATIENT
  Age: 11 Year
  Sex: Male

DRUGS (4)
  1. PHENYTOIN. [Suspect]
     Active Substance: PHENYTOIN
     Dosage: 400 MG/DAY
  2. PRIMIDONE. [Concomitant]
     Active Substance: PRIMIDONE
     Indication: SEIZURE
     Dosage: 1000 MG/DAY OVER A FOUR-MONTH PERIOD
  3. PHENYTOIN. [Suspect]
     Active Substance: PHENYTOIN
     Dosage: 600 MG/DAY
  4. PHENYTOIN. [Suspect]
     Active Substance: PHENYTOIN
     Indication: SEIZURE
     Dosage: 300 MG/DAY

REACTIONS (9)
  - Dysarthria [Unknown]
  - Clonic convulsion [Unknown]
  - Areflexia [Unknown]
  - Nervous system disorder [Not Recovered/Not Resolved]
  - Cerebellar ataxia [Unknown]
  - Gait disturbance [Unknown]
  - Drug ineffective [Unknown]
  - Neuropathy peripheral [Unknown]
  - Cerebellar atrophy [Not Recovered/Not Resolved]
